FAERS Safety Report 6733297-3 (Version None)
Quarter: 2010Q2

REPORT INFORMATION
  Report Type: 
  Country: None (occurrence: None)
  Receive Date: 20100518
  Receipt Date: 20100505
  Transmission Date: 20101027
  Serious: Yes (Hospitalization)
  Sender: FDA-Public Use
  Company Number: 002138

PATIENT
  Sex: Female
  Weight: 89.8 kg

DRUGS (2)
  1. LACOSAMIDE [Suspect]
     Indication: EPILEPSY
     Dosage: REDUCED DOSE. ORAL, 400 MG BID ORAL
     Route: 048
     Dates: start: 20081216
  2. SIMVASTATIN [Concomitant]

REACTIONS (1)
  - NEPHROLITHIASIS [None]
